FAERS Safety Report 8505126-9 (Version None)
Quarter: 2012Q3

REPORT INFORMATION
  Report Type: 
  Country: None (occurrence: None)
  Receive Date: 20120712
  Receipt Date: 20120710
  Transmission Date: 20120928
  Serious: Yes (Life-Threatening, Hospitalization)
  Sender: FDA-Public Use
  Company Number: PHHO2012DE010213

PATIENT
  Age: 67 Year
  Sex: Male
  Weight: 74 kg

DRUGS (3)
  1. MYCOPHENOLIC ACID [Suspect]
     Indication: PANCREAS TRANSPLANT
     Dosage: 720 MG, BID
     Dates: start: 20120304, end: 20120321
  2. PREDNISONE TAB [Concomitant]
     Indication: IMMUNOSUPPRESSION
     Dosage: 5 MG, QD
     Route: 048
     Dates: start: 20120304
  3. CYCLOSPORINE [Concomitant]
     Dosage: 75 MG, BID
     Route: 048

REACTIONS (1)
  - ACUTE CORONARY SYNDROME [None]
